FAERS Safety Report 10149175 (Version 1)
Quarter: 2014Q2

REPORT INFORMATION
  Report Type: Spontaneous
  Country: US (occurrence: None)
  Receive Date: 20140430
  Receipt Date: 20140430
  Transmission Date: 20141212
  Serious: Yes (Hospitalization)
  Sender: FDA-Public Use
  Company Number: None

PATIENT
  Age: 64 Year
  Sex: Female
  Weight: 51.5 kg

DRUGS (1)
  1. ALFA 2 INTERFERON 2B [Suspect]
     Dates: start: 20140424

REACTIONS (3)
  - Rectal haemorrhage [None]
  - Colitis ischaemic [None]
  - Abdominal pain [None]
